FAERS Safety Report 16558981 (Version 2)
Quarter: 2019Q4

REPORT INFORMATION
  Report Type: Spontaneous
  Country: US (occurrence: US)
  Receive Date: 20190711
  Receipt Date: 20191024
  Transmission Date: 20200122
  Serious: No
  Sender: FDA-Public Use
  Company Number: US-JNJFOC-20190710591

PATIENT
  Age: 56 Year
  Sex: Male

DRUGS (1)
  1. ZYTIGA [Suspect]
     Active Substance: ABIRATERONE ACETATE
     Indication: PRODUCT USED FOR UNKNOWN INDICATION
     Route: 048
     Dates: start: 20190327, end: 20190627

REACTIONS (10)
  - Pyrexia [Recovered/Resolved]
  - Myalgia [Recovered/Resolved]
  - Burning sensation [Unknown]
  - Treatment noncompliance [Unknown]
  - Hypoaesthesia [Unknown]
  - Heart rate irregular [Unknown]
  - Pharyngeal swelling [Recovered/Resolved]
  - Tooth fracture [Unknown]
  - Dysphagia [Recovered/Resolved]
  - Wrong technique in product usage process [Unknown]
